FAERS Safety Report 19643485 (Version 1)
Quarter: 2021Q3

REPORT INFORMATION
  Report Type: Report from Study
  Country: AR (occurrence: AR)
  Receive Date: 20210731
  Receipt Date: 20210731
  Transmission Date: 20211014
  Serious: Yes (Other)
  Sender: FDA-Public Use
  Company Number: NVSC2020AR261214

PATIENT
  Age: 69 Year
  Sex: Female

DRUGS (4)
  1. CANNABIS SATIVA OIL [Concomitant]
     Active Substance: CANNABIS SATIVA SUBSP. INDICA TOP
     Indication: FIBROMYALGIA
     Dosage: UNK (PATIENT TOOK IT TIME BY TIME FOR FIBROMYALGIA)
     Route: 065
  2. COSENTYX [Suspect]
     Active Substance: SECUKINUMAB
     Indication: GUTTATE PSORIASIS
     Dosage: 300 MG, QMO (2 OF 150 MG)
     Route: 065
     Dates: start: 202002
  3. METHOTREXATE. [Concomitant]
     Active Substance: METHOTREXATE
     Indication: PSORIASIS
     Dosage: UNK, QW (DOSE REPORTED AS 1 (UNKNOWN UNIT), STARTED MANY YEARS AGO)
     Route: 065
  4. COSENTYX [Suspect]
     Active Substance: SECUKINUMAB
     Indication: PSORIATIC ARTHROPATHY
     Dosage: 150 MG, QMO
     Route: 058
     Dates: start: 20170105, end: 202012

REACTIONS (10)
  - Psoriatic arthropathy [Unknown]
  - Hepatic steatosis [Unknown]
  - Nervousness [Unknown]
  - Movement disorder [Unknown]
  - Abdominal pain [Unknown]
  - Alopecia [Recovering/Resolving]
  - Acne [Unknown]
  - Cyst [Recovered/Resolved]
  - Pain in extremity [Recovered/Resolved]
  - Kidney small [Unknown]

NARRATIVE: CASE EVENT DATE: 202001
